FAERS Safety Report 4730974-0 (Version None)
Quarter: 2005Q3

REPORT INFORMATION
  Report Type: 
  Country: None (occurrence: None)
  Receive Date: 20050719
  Receipt Date: 20040715
  Transmission Date: 20060218
  Serious: Yes (Hospitalization)
  Sender: FDA-Public Use
  Company Number: 201500

PATIENT
  Age: 56 Year
  Sex: Female
  Weight: 77.1115 kg

DRUGS (6)
  1. AVONEX [Suspect]
     Indication: MULTIPLE SCLEROSIS
     Dosage: 30 UG;QW;IM  30 UG;QW;IM
     Route: 030
  2. BACLOFEN [Concomitant]
  3. LITHIUM [Concomitant]
  4. PAXIL [Concomitant]
  5. PREMARIN [Concomitant]
  6. DITROPAN XL [Concomitant]

REACTIONS (6)
  - CONFUSIONAL STATE [None]
  - MULTIPLE SCLEROSIS RELAPSE [None]
  - NUCLEAR MAGNETIC RESONANCE IMAGING BRAIN ABNORMAL [None]
  - ORAL FUNGAL INFECTION [None]
  - URINARY INCONTINENCE [None]
  - URINARY TRACT INFECTION [None]
